FAERS Safety Report 10178510 (Version 1)
Quarter: 2014Q2

REPORT INFORMATION
  Report Type: Spontaneous
  Country: US (occurrence: US)
  Receive Date: 20140519
  Receipt Date: 20140519
  Transmission Date: 20141212
  Serious: Yes (Hospitalization)
  Sender: FDA-Public Use
  Company Number: US-BAYER-2014-072377

PATIENT
  Age: 29 Year
  Sex: Female
  Weight: 102.4 kg

DRUGS (10)
  1. YASMIN [Suspect]
  2. DOXYCYCLINE HYCLATE [Concomitant]
     Dosage: 100 MG, 1 CAPSULE TWICE A DAY FOR 10 DAYS
  3. METFORMIN [Concomitant]
     Dosage: 500 MG, TAKE 1 TABLET AFTER SUPPER
  4. IRON [FERROUS SULFATE] [Concomitant]
     Dosage: 10 MG, 1/DAY IRON LEVEL
  5. GLUCOPHAGE [Concomitant]
  6. LEVAQUIN [Concomitant]
  7. IRON SULFATE [Concomitant]
     Dosage: 325 MG, TID
  8. NASONEX [Concomitant]
     Indication: RHINITIS ALLERGIC
  9. ATENOLOL [Concomitant]
     Dosage: 25 MG, UNK
  10. LORTAB [Concomitant]
     Indication: PAIN IN EXTREMITY
     Dosage: 5 MG, UNK

REACTIONS (2)
  - Pulmonary embolism [None]
  - Deep vein thrombosis [Recovered/Resolved]
